FAERS Safety Report 7038330-X (Version None)
Quarter: 2010Q4

REPORT INFORMATION
  Report Type: 
  Country: None (occurrence: None)
  Receive Date: 20101011
  Receipt Date: 20100119
  Transmission Date: 20110411
  Serious: No
  Sender: FDA-Public Use
  Company Number: US-PFIZER INC-2010007892

PATIENT
  Sex: Female
  Weight: 86.182 kg

DRUGS (2)
  1. NEURONTIN [Suspect]
     Indication: BACK PAIN
     Dosage: UNK
     Dates: start: 20090101
  2. NEURONTIN [Suspect]
     Indication: NEUROPATHY PERIPHERAL

REACTIONS (4)
  - LYMPHADENOPATHY [None]
  - MUSCULOSKELETAL STIFFNESS [None]
  - NODULE [None]
  - SCAB [None]
